FAERS Safety Report 8042840-6 (Version None)
Quarter: 2012Q1

REPORT INFORMATION
  Report Type: 
  Country: None (occurrence: None)
  Receive Date: 20120112
  Receipt Date: 20111130
  Transmission Date: 20120608
  Serious: Yes (Other)
  Sender: FDA-Public Use
  Company Number: IT-PFIZER INC-2011296393

PATIENT
  Age: 72 Year
  Sex: Male

DRUGS (2)
  1. METRONIDAZOLE [Suspect]
     Indication: ANTIBIOTIC PROPHYLAXIS
     Dosage: 3 DOSAGE FORMS (500MG/100ML)
     Route: 042
     Dates: start: 20111113, end: 20111117
  2. PANTOPRAZOLE SODIUM [Suspect]
     Indication: HIATUS HERNIA
     Dosage: 20 MG/DAILY
     Route: 048
     Dates: start: 20111113, end: 20111117

REACTIONS (2)
  - MOTOR DYSFUNCTION [None]
  - NEURALGIA [None]
